FAERS Safety Report 8216374-X (Version None)
Quarter: 2012Q1

REPORT INFORMATION
  Report Type: 
  Country: None (occurrence: None)
  Receive Date: 20120316
  Receipt Date: 20120312
  Transmission Date: 20120608
  Serious: Yes (Hospitalization, Other)
  Sender: FDA-Public Use
  Company Number: PHHY2012MX022579

PATIENT
  Sex: Female

DRUGS (2)
  1. METOPROLOL SUCCINATE [Concomitant]
     Indication: DIURETIC THERAPY
     Dosage: 0.25 DF, QD
  2. EXFORGE HCT [Suspect]
     Indication: HYPERTENSION
     Dosage: 1 DF, QD

REACTIONS (4)
  - OCULAR HYPERTENSION [None]
  - HEADACHE [None]
  - ERYTHROPSIA [None]
  - EYE SWELLING [None]
